FAERS Safety Report 9210483 (Version 1)
Quarter: 2013Q2

REPORT INFORMATION
  Report Type: Spontaneous
  Country: DE (occurrence: DE)
  Receive Date: 20130404
  Receipt Date: 20130404
  Transmission Date: 20140414
  Serious: Yes (Hospitalization)
  Sender: FDA-Public Use
  Company Number: DE-TEVA-394738GER

PATIENT
  Age: 63 Year
  Sex: Male
  Weight: 62 kg

DRUGS (2)
  1. GEMCITABINE [Suspect]
     Indication: BRONCHIAL CARCINOMA
     Route: 041
  2. CARBOPLATIN [Concomitant]
     Indication: BRONCHIAL CARCINOMA
     Route: 041

REACTIONS (3)
  - Dyspnoea [Recovering/Resolving]
  - Ocular hyperaemia [Recovering/Resolving]
  - Rash [Recovering/Resolving]
